FAERS Safety Report 13997912 (Version 5)
Quarter: 2018Q3

REPORT INFORMATION
  Report Type: Report from Study
  Country: FR (occurrence: FR)
  Receive Date: 20170921
  Receipt Date: 20180718
  Transmission Date: 20181010
  Serious: Yes (Hospitalization, Other)
  Sender: FDA-Public Use
  Company Number: FR-INCYTE CORPORATION-2017IN002753

PATIENT

DRUGS (11)
  1. JAKAVI [Suspect]
     Active Substance: RUXOLITINIB
     Dosage: 20 MG, BID
     Route: 048
     Dates: start: 20140408, end: 20141002
  2. KARDEGIC [Concomitant]
     Active Substance: ASPIRIN DL-LYSINE
     Indication: CORONARY ARTERY INSUFFICIENCY
     Dosage: 75 MG, QD
     Route: 065
     Dates: start: 20150905
  3. RITUXIMAB. [Concomitant]
     Active Substance: RITUXIMAB
     Indication: CHRONIC LYMPHOCYTIC LEUKAEMIA
     Dosage: 700 MG, EVERY 2 WEEKS
     Route: 065
     Dates: start: 20150325, end: 20150904
  4. POLARAMINE [Concomitant]
     Active Substance: DEXCHLORPHENIRAMINE MALEATE
     Indication: PRODUCT USED FOR UNKNOWN INDICATION
     Dosage: 5 MG, EVERY 2 WEEKS
     Route: 065
     Dates: start: 20150325, end: 20150904
  5. JAKAVI [Suspect]
     Active Substance: RUXOLITINIB
     Dosage: 15 MG, BID
     Route: 048
     Dates: start: 20141003
  6. SOLU?MEDROL [Concomitant]
     Active Substance: METHYLPREDNISOLONE SODIUM SUCCINATE
     Indication: PRODUCT USED FOR UNKNOWN INDICATION
     Dosage: 60 MG, EVERY 2 WEEKS
     Route: 065
     Dates: start: 20150325, end: 20150904
  7. ARANESP [Concomitant]
     Active Substance: DARBEPOETIN ALFA
     Indication: PRODUCT USED FOR UNKNOWN INDICATION
     Dosage: 300 UG, QW
     Route: 065
     Dates: start: 20140306
  8. PARACETAMOL [Concomitant]
     Active Substance: ACETAMINOPHEN
     Indication: PRODUCT USED FOR UNKNOWN INDICATION
     Dosage: 500 MG, EVERY 2 WEEKS
     Route: 065
     Dates: start: 20150325, end: 20150904
  9. DAFALGAN [Concomitant]
     Active Substance: ACETAMINOPHEN
     Indication: PAIN
     Dosage: 500 MG, QD (1 DF IF NEEDED)
     Route: 065
     Dates: start: 20170311
  10. JAKAVI [Suspect]
     Active Substance: RUXOLITINIB
     Indication: MYELOFIBROSIS
     Dosage: 20 MG, BID
     Route: 048
     Dates: start: 20140205, end: 20140407
  11. SILODOSINE [Concomitant]
     Active Substance: SILODOSIN
     Indication: BENIGN PROSTATIC HYPERPLASIA
     Dosage: 4 MG, QD
     Route: 065
     Dates: start: 20141114

REACTIONS (17)
  - Contusion [Recovered/Resolved]
  - Anaemia [Recovered/Resolved]
  - Fall [Recovered/Resolved]
  - Squamous cell carcinoma of skin [Unknown]
  - Chest injury [Unknown]
  - Bronchitis [Recovered/Resolved]
  - Epistaxis [Recovered/Resolved]
  - Folate deficiency [Recovered/Resolved]
  - Ventricular arrhythmia [Recovered/Resolved]
  - Bronchitis [Recovered/Resolved]
  - Abdominal injury [Unknown]
  - Splenic haematoma [Recovered/Resolved]
  - Gout [Recovered/Resolved]
  - Flank pain [Unknown]
  - Haematoma [Recovered/Resolved]
  - Second primary malignancy [Unknown]
  - Cardiac failure chronic [Not Recovered/Not Resolved]

NARRATIVE: CASE EVENT DATE: 20140513
